FAERS Safety Report 4789082-5 (Version None)
Quarter: 2005Q4

REPORT INFORMATION
  Report Type: 
  Country: None (occurrence: None)
  Receive Date: 20051005
  Receipt Date: 20050322
  Transmission Date: 20060501
  Serious: Yes (Hospitalization)
  Sender: FDA-Public Use
  Company Number: US-MERCK-0503USA04195

PATIENT
  Age: 52 Year
  Sex: Male
  Weight: 86 kg

DRUGS (8)
  1. VIOXX [Suspect]
     Indication: ARTHRALGIA
     Route: 048
     Dates: start: 20031017, end: 20031221
  2. FLONASE [Concomitant]
     Route: 065
  3. WELLBUTRIN SR [Concomitant]
     Route: 048
  4. DARVOCET-N 100 [Concomitant]
     Indication: PAIN
     Route: 065
  5. REMERON [Concomitant]
     Route: 048
  6. COUMADIN [Concomitant]
     Route: 048
  7. LIPITOR [Concomitant]
     Indication: BLOOD CHOLESTEROL INCREASED
     Route: 065
     Dates: start: 20020201
  8. ASPIRIN [Concomitant]
     Indication: PROPHYLAXIS
     Route: 065
     Dates: start: 20020101, end: 20040101

REACTIONS (4)
  - DEEP VEIN THROMBOSIS [None]
  - HEPATIC ENZYME INCREASED [None]
  - THROMBOSIS [None]
  - VIRAL INFECTION [None]
